FAERS Safety Report 9042116 (Version 1)
Quarter: 2013Q1

REPORT INFORMATION
  Report Type: Report from Study
  Country: US (occurrence: US)
  Receive Date: 20130129
  Receipt Date: 20130129
  Transmission Date: 20140127
  Serious: No
  Sender: FDA-Public Use
  Company Number: US-ABBOTT-12P-163-0906632-00

PATIENT
  Sex: Female
  Weight: 86.26 kg

DRUGS (6)
  1. HUMIRA 40 MG/ 0.8 ML PRE-FILLED SYRINGE [Suspect]
     Indication: CROHN^S DISEASE
     Dates: start: 2009
  2. PENTASA [Concomitant]
     Indication: CROHN^S DISEASE
  3. ATENOLOL [Concomitant]
     Indication: HYPERTENSION
  4. MULTIVITAMIN [Concomitant]
     Indication: VITAMIN SUPPLEMENTATION
  5. CALCIUM + VITAMIN D [Concomitant]
     Indication: MINERAL SUPPLEMENTATION
  6. SPIRONOLACTONE [Concomitant]
     Indication: FLUID RETENTION

REACTIONS (1)
  - Fungal infection [Not Recovered/Not Resolved]
